FAERS Safety Report 17203289 (Version 1)
Quarter: 2019Q4

REPORT INFORMATION
  Report Type: Spontaneous
  Country: US (occurrence: US)
  Receive Date: 20191226
  Receipt Date: 20191226
  Transmission Date: 20200122
  Serious: No
  Sender: FDA-Public Use
  Company Number: US-UPSHER-SMITH LABORATORIES, LLC-2019USL00081

PATIENT
  Age: 49 Year
  Sex: Female
  Weight: 49.43 kg

DRUGS (10)
  1. KLOR-CON M [Suspect]
     Active Substance: POTASSIUM CHLORIDE
     Indication: BLOOD POTASSIUM DECREASED
     Dosage: 20 MEQ, 2X/DAY
     Route: 048
     Dates: start: 2010, end: 201902
  2. COMPOUNDED IBUPROFEN [Concomitant]
  3. MAGNESIUM [Concomitant]
     Active Substance: MAGNESIUM
  4. KLOR-CON M [Suspect]
     Active Substance: POTASSIUM CHLORIDE
     Indication: HEART VALVE INCOMPETENCE
  5. ZINC. [Concomitant]
     Active Substance: ZINC
  6. VITAMIN E [Concomitant]
     Active Substance: .ALPHA.-TOCOPHEROL
  7. VITAMIN D3 [Concomitant]
     Active Substance: CHOLECALCIFEROL
  8. SYNTHROID [Concomitant]
     Active Substance: LEVOTHYROXINE SODIUM
  9. TURMERIC [Concomitant]
     Active Substance: HERBALS\TURMERIC
  10. AMALA - INDIAN GOOSEBERRY [Concomitant]

REACTIONS (5)
  - Gastrointestinal pain [Recovered/Resolved]
  - Faeces hard [Recovering/Resolving]
  - Abdominal distension [Recovering/Resolving]
  - Gastrointestinal disorder [Recovering/Resolving]
  - Back pain [Recovering/Resolving]

NARRATIVE: CASE EVENT DATE: 201901
